FAERS Safety Report 6638660-7 (Version None)
Quarter: 2010Q1

REPORT INFORMATION
  Report Type: 
  Country: None (occurrence: None)
  Receive Date: 20100317
  Receipt Date: 20100305
  Transmission Date: 20100710
  Serious: Yes (Other)
  Sender: FDA-Public Use
  Company Number: US-JNJFOC-20100302395

PATIENT
  Age: 15 Year
  Sex: Female
  Weight: 58.51 kg

DRUGS (5)
  1. INFLIXIMAB [Suspect]
     Indication: JUVENILE ARTHRITIS
     Route: 042
  2. INFLIXIMAB [Suspect]
     Route: 042
  3. INFLIXIMAB [Suspect]
     Route: 042
  4. METHOTREXATE [Concomitant]
     Dosage: SINCE AGE 3
     Route: 058
  5. FOLIC ACID [Concomitant]

REACTIONS (1)
  - PSORIASIS [None]
